FAERS Safety Report 8939880 (Version 1)
Quarter: 2012Q4

REPORT INFORMATION
  Report Type: 
  Country: GB (occurrence: GB)
  Receive Date: 20121203
  Receipt Date: 20121203
  Transmission Date: 20130627
  Serious: Yes (Hospitalization)
  Sender: FDA-Public Use
  Company Number: GB-MERCK-1211GBR011453

PATIENT
  Sex: Male

DRUGS (5)
  1. SYCREST [Suspect]
     Indication: MANIA
     Dosage: 5 mg, bid
     Route: 060
     Dates: start: 201211
  2. OLANZAPINE [Concomitant]
     Dosage: 20 mg, qd
  3. LAMOTRIGINE [Concomitant]
     Dosage: 100 mg, qd
  4. LAMOTRIGINE [Concomitant]
     Dosage: 50 mg, UNK
  5. LORAZEPAM [Concomitant]

REACTIONS (6)
  - Mania [Unknown]
  - Drug administration error [Unknown]
  - Somnolence [Unknown]
  - Syncope [Unknown]
  - Sedation [Unknown]
  - Orthostatic hypotension [Unknown]
